FAERS Safety Report 5429269-1 (Version None)
Quarter: 2007Q3

REPORT INFORMATION
  Report Type: 
  Country: None (occurrence: None)
  Receive Date: 20070829
  Receipt Date: 20070828
  Transmission Date: 20080115
  Serious: Yes (Death, Hospitalization, Other)
  Sender: FDA-Public Use
  Company Number: US-PURDUE-USA_2007_0027680

PATIENT
  Sex: Male
  Weight: 109 kg

DRUGS (1)
  1. OXYCONTIN [Suspect]
     Indication: PAIN
     Dosage: 80 MG, SEE TEXT
     Dates: start: 19981026, end: 20020821

REACTIONS (8)
  - AMNESIA [None]
  - ANGER [None]
  - ARTERIOSCLEROSIS [None]
  - DRUG ABUSER [None]
  - INTENTIONAL DRUG MISUSE [None]
  - MENTAL IMPAIRMENT [None]
  - NERVOUS SYSTEM DISORDER [None]
  - PARANOIA [None]
